FAERS Safety Report 15377610 (Version 1)
Quarter: 2018Q3

REPORT INFORMATION
  Report Type: Spontaneous
  Country: US (occurrence: US)
  Receive Date: 20180906
  Receipt Date: 20180906
  Transmission Date: 20181010
  Serious: No
  Sender: FDA-Public Use
  Company Number: None

PATIENT
  Age: 66 Year
  Sex: Male

DRUGS (1)
  1. TEMOZOLMIDE 140MG CAP [Suspect]
     Active Substance: TEMOZOLOMIDE
     Route: 048
     Dates: start: 20180813

REACTIONS (4)
  - Fatigue [None]
  - Confusional state [None]
  - Nausea [None]
  - Wrong technique in product usage process [None]

NARRATIVE: CASE EVENT DATE: 20180905
